FAERS Safety Report 7247852-8 (Version None)
Quarter: 2011Q1

REPORT INFORMATION
  Report Type: 
  Country: None (occurrence: None)
  Receive Date: 20110127
  Receipt Date: 20110119
  Transmission Date: 20110831
  Serious: Yes (Other)
  Sender: FDA-Public Use
  Company Number: US-PFIZER INC-2011014329

PATIENT
  Sex: Female

DRUGS (1)
  1. CHANTIX [Suspect]
     Dosage: UNK,
     Dates: start: 20071201

REACTIONS (3)
  - DEPRESSION [None]
  - ANXIETY [None]
  - SUICIDE ATTEMPT [None]
